FAERS Safety Report 4718810-X (Version None)
Quarter: 2005Q3

REPORT INFORMATION
  Report Type: 
  Country: None (occurrence: None)
  Receive Date: 20050719
  Receipt Date: 20050705
  Transmission Date: 20060218
  Serious: Yes (Hospitalization, Other)
  Sender: FDA-Public Use
  Company Number: 2005098046

PATIENT
  Sex: Female

DRUGS (3)
  1. DILANTIN [Suspect]
     Indication: GRAND MAL CONVULSION
     Dosage: 1 IN 1 D ORAL
     Route: 048
     Dates: start: 20020301
  2. CARBIDOPA [Concomitant]
  3. IRON [Concomitant]

REACTIONS (4)
  - BLOOD COUNT ABNORMAL [None]
  - BLOOD PRESSURE DIASTOLIC DECREASED [None]
  - BODY TEMPERATURE DECREASED [None]
  - PALLOR [None]
